FAERS Safety Report 21703669 (Version 2)
Quarter: 2023Q1

REPORT INFORMATION
  Report Type: Spontaneous
  Country: CA (occurrence: CA)
  Receive Date: 20221209
  Receipt Date: 20230206
  Transmission Date: 20230417
  Serious: Yes (Hospitalization, Other)
  Sender: FDA-Public Use
  Company Number: CA-CELLTRION INC.-2022CA020678

PATIENT

DRUGS (3)
  1. INFLECTRA [Suspect]
     Active Substance: INFLIXIMAB-DYYB
     Indication: Colitis ulcerative
     Dosage: 360 MG, INDUCTION WEEK 2, 6 THEN MAINTENANCE EVERY 8 WEEKS. FIRST DOSE IN HOSPITAL ON 17NOV2022
     Route: 042
     Dates: start: 20221117
  2. PREDNISONE [Concomitant]
     Active Substance: PREDNISONE
     Dosage: 40 MG
     Dates: start: 20221012
  3. MESALAMINE [Concomitant]
     Active Substance: MESALAMINE
     Dosage: 5,8G
     Dates: start: 20221111

REACTIONS (1)
  - Large intestine perforation [Recovering/Resolving]

NARRATIVE: CASE EVENT DATE: 20221125
